FAERS Safety Report 25365913 (Version 2)
Quarter: 2025Q2

REPORT INFORMATION
  Report Type: Report from Study
  Country: CA (occurrence: CA)
  Receive Date: 20250528
  Receipt Date: 20250530
  Transmission Date: 20250717
  Serious: Yes (Other)
  Sender: ABBVIE
  Company Number: CA-ABBVIE-6296816

PATIENT
  Age: 60 Year
  Sex: Male

DRUGS (1)
  1. SKYRIZI [Suspect]
     Active Substance: RISANKIZUMAB-RZAA
     Indication: Crohn^s disease
     Route: 058
     Dates: start: 20240911

REACTIONS (5)
  - Suicidal ideation [Unknown]
  - Pyrexia [Recovered/Resolved]
  - Dyschezia [Unknown]
  - Haematochezia [Unknown]
  - Illness [Unknown]

NARRATIVE: CASE EVENT DATE: 20250517
